FAERS Safety Report 19623991 (Version 1)
Quarter: 2021Q3

REPORT INFORMATION
  Report Type: Spontaneous
  Country: GB (occurrence: GB)
  Receive Date: 20210728
  Receipt Date: 20210728
  Transmission Date: 20211014
  Serious: Yes (Other)
  Sender: FDA-Public Use
  Company Number: GB-MYLANLABS-2021M1045319

PATIENT
  Age: 20 Year
  Sex: Female
  Weight: 61.23 kg

DRUGS (3)
  1. CLARITHROMYCIN. [Suspect]
     Active Substance: CLARITHROMYCIN
     Indication: ILL-DEFINED DISORDER
     Dosage: 500 MILLIGRAM
     Route: 048
  2. CERELLE [Concomitant]
     Active Substance: DESOGESTREL
     Indication: ILL-DEFINED DISORDER
     Dosage: UNK
  3. PROPANTHELINE [Concomitant]
     Active Substance: PROPANTHELINE
     Indication: ILL-DEFINED DISORDER
     Dosage: UNK

REACTIONS (5)
  - Dysgeusia [Not Recovered/Not Resolved]
  - Chromaturia [Not Recovered/Not Resolved]
  - Nausea [Not Recovered/Not Resolved]
  - Hyperhidrosis [Not Recovered/Not Resolved]
  - Diarrhoea [Not Recovered/Not Resolved]
